FAERS Safety Report 23168573 (Version 1)
Quarter: 2023Q4

REPORT INFORMATION
  Report Type: Spontaneous
  Country: RS (occurrence: RS)
  Receive Date: 20231110
  Receipt Date: 20231110
  Transmission Date: 20240110
  Serious: Yes (Other)
  Sender: FDA-Public Use
  Company Number: RS-JNJFOC-20211205678

PATIENT
  Age: 3 Decade
  Sex: Male

DRUGS (12)
  1. PALIPERIDONE PALMITATE [Suspect]
     Active Substance: PALIPERIDONE PALMITATE
     Indication: Schizophrenia
     Dosage: 350 MG/1,750 ML SUSPENSION FOR INJECTION WITH EXTENDED RELEASE IM/3 MONTHS
     Route: 030
     Dates: start: 20200528
  2. PALIPERIDONE PALMITATE [Suspect]
     Active Substance: PALIPERIDONE PALMITATE
     Dosage: 263 MG/1,750 ML SUSPENSION FOR INJECTION WITH EXTENDED RELEASE IM/3 MONTHS
     Route: 030
     Dates: start: 20220414
  3. PALIPERIDONE PALMITATE [Suspect]
     Active Substance: PALIPERIDONE PALMITATE
  4. FLUOXETINE [Concomitant]
     Active Substance: FLUOXETINE HYDROCHLORIDE
     Indication: Product used for unknown indication
     Dosage: 1/2 IN THE MORNING FOR 7 DAYS, THEN 1 IN THE MORNING.
     Route: 065
     Dates: start: 20201008
  5. ALPRAZOLAM [Concomitant]
     Active Substance: ALPRAZOLAM
     Indication: Anxiety
     Dosage: 1+0+1 PP
     Route: 065
     Dates: start: 20200528
  6. ALPRAZOLAM [Concomitant]
     Active Substance: ALPRAZOLAM
     Indication: Tension
  7. SIDATA [Concomitant]
     Indication: Product used for unknown indication
     Dosage: 1+0+0.
     Route: 065
     Dates: start: 20200528
  8. FLUNIRIN [Concomitant]
     Dosage: 1+0+1
  9. SERTRALINE [Concomitant]
     Active Substance: SERTRALINE HYDROCHLORIDE
  10. CARIPRAZINE [Concomitant]
     Active Substance: CARIPRAZINE
     Dosage: 1.5 MG 1X1 FOR THE NEXT 15 DAYS
     Dates: start: 20220607
  11. CARIPRAZINE [Concomitant]
     Active Substance: CARIPRAZINE
  12. CARIPRAZINE [Concomitant]
     Active Substance: CARIPRAZINE

REACTIONS (4)
  - Akinesia [Not Recovered/Not Resolved]
  - Obsessive-compulsive disorder [Not Recovered/Not Resolved]
  - Apathy [Not Recovered/Not Resolved]
  - Speech disorder [Recovering/Resolving]

NARRATIVE: CASE EVENT DATE: 20220414
